FAERS Safety Report 21616407 (Version 1)
Quarter: 2022Q4

REPORT INFORMATION
  Report Type: Report from Study
  Country: US (occurrence: US)
  Receive Date: 20221118
  Receipt Date: 20221118
  Transmission Date: 20230113
  Serious: No
  Sender: FDA-Public Use
  Company Number: US-ABBVIE-4182963

PATIENT
  Sex: Male

DRUGS (1)
  1. HUMIRA [Suspect]
     Active Substance: ADALIMUMAB
     Indication: Rheumatic heart disease
     Dosage: LAST ADMINISTRATION DATE WAS 2022.?FORM STRENGTH 40 MILLIGRAM
     Route: 058
     Dates: start: 20220414

REACTIONS (1)
  - Psoriasis [Not Recovered/Not Resolved]
